FAERS Safety Report 18860194 (Version 1)
Quarter: 2021Q1

REPORT INFORMATION
  Report Type: Spontaneous
  Country: IL (occurrence: IL)
  Receive Date: 20210208
  Receipt Date: 20210208
  Transmission Date: 20210420
  Serious: Yes (Other)
  Sender: FDA-Public Use
  Company Number: IL-BIOVITRUM-2021IL1132

PATIENT
  Age: 62 Year

DRUGS (1)
  1. KINERET [Suspect]
     Active Substance: ANAKINRA
     Indication: PERICARDITIS

REACTIONS (2)
  - Hot flush [Not Recovered/Not Resolved]
  - Off label use [Unknown]
